FAERS Safety Report 9109554 (Version 1)
Quarter: 2013Q1

REPORT INFORMATION
  Report Type: Spontaneous
  Country: US (occurrence: US)
  Receive Date: 20130222
  Receipt Date: 20130222
  Transmission Date: 20140127
  Serious: Yes (Life-Threatening, Hospitalization)
  Sender: FDA-Public Use
  Company Number: US-BAYER-2013-020510

PATIENT
  Age: 83 Year
  Sex: Female
  Weight: 90.3 kg

DRUGS (16)
  1. XARELTO [Suspect]
     Indication: CEREBROVASCULAR ACCIDENT PROPHYLAXIS
     Dosage: 20 MG, QD
     Route: 048
     Dates: start: 20120319, end: 20120925
  2. XARELTO [Suspect]
     Indication: ATRIAL FIBRILLATION
  3. ACETYLSALICYLIC ACID({=100 MG) [Interacting]
     Dosage: 81 MG, QD
     Route: 048
  4. MELOXICAM [Interacting]
     Indication: PRODUCT USED FOR UNKNOWN INDICATION
     Dosage: 15 MG, QD
     Route: 048
  5. ALBUTEROL [Concomitant]
     Route: 065
  6. ALBUTEROL [Concomitant]
  7. IPRATROPIUM [Concomitant]
     Route: 065
  8. IPRATROPIUM [Concomitant]
  9. ALPRAZOLAM [Concomitant]
     Dosage: .5 MG, UNK
     Route: 048
  10. CEFPODOXIME [Concomitant]
     Dosage: 100 MG, BID
     Route: 048
  11. DILTIAZEM [Concomitant]
     Dosage: 120 MG, QD
     Route: 048
  12. LASIX [Concomitant]
     Dosage: 20 MG, QD
     Route: 048
  13. LEVOTHYROXINE [Concomitant]
     Dosage: 88 ?G, QD
     Route: 048
  14. LOVASTATIN [Concomitant]
     Dosage: 40 MG, QD
     Route: 048
  15. PREDNISONE [Concomitant]
     Dosage: 10 MG, QD
     Route: 048
  16. SOTALOL [Concomitant]
     Dosage: 80 MG, QD
     Route: 048

REACTIONS (14)
  - Haemorrhage intracranial [Recovered/Resolved]
  - Upper gastrointestinal haemorrhage [Recovered/Resolved]
  - Haemorrhagic anaemia [Recovered/Resolved]
  - Abasia [Recovered/Resolved]
  - Headache [Recovered/Resolved]
  - Dizziness [Recovered/Resolved]
  - Melaena [Recovered/Resolved]
  - Gait disturbance [Recovered/Resolved]
  - Weight decreased [Unknown]
  - Anion gap decreased [None]
  - Blood urea abnormal [None]
  - Cerebral atrophy [None]
  - Sinus bradycardia [None]
  - Left ventricular hypertrophy [None]
